FAERS Safety Report 17511557 (Version 1)
Quarter: 2020Q1

REPORT INFORMATION
  Report Type: Spontaneous
  Country: EG (occurrence: EG)
  Receive Date: 20200308
  Receipt Date: 20200308
  Transmission Date: 20200409
  Serious: Yes (Other)
  Sender: FDA-Public Use
  Company Number: EG-INGENUS PHARMACEUTICALS, LLC-2020INF000041

PATIENT
  Age: 53 Year
  Sex: Male

DRUGS (3)
  1. FOLINIC ACID [Concomitant]
     Active Substance: LEUCOVORIN
     Indication: COLON CANCER STAGE III
     Dosage: UNK, EVERY 2 WEEKS FOR 4 MONTHS
     Route: 065
  2. OXALIPLATIN. [Suspect]
     Active Substance: OXALIPLATIN
     Indication: COLON CANCER STAGE III
     Dosage: UNK, EVERY 2 WEEKS FOR 4 MONTHS
     Route: 065
  3. 5-FLUOROURACIL [Suspect]
     Active Substance: FLUOROURACIL
     Indication: COLON CANCER STAGE III
     Dosage: UNK, EVERY 2 WEEKS FOR 4 MONTHS
     Route: 042

REACTIONS (1)
  - Optic ischaemic neuropathy [Not Recovered/Not Resolved]
